FAERS Safety Report 7764674 (Version 2)
Quarter: 2013Q4

REPORT INFORMATION
  Report Type: Spontaneous
  Country: US (occurrence: US)
  Receive Date: 20110119
  Receipt Date: 20131003
  Transmission Date: 20140711
  Serious: Yes (Death, Hospitalization)
  Sender: FDA-Public Use
  Company Number: US-RANBAXY-2011US-40918

PATIENT
  Age: 13 Year
  Sex: Female

DRUGS (3)
  1. PHENOBARBITAL [Suspect]
     Indication: CONVULSION
     Dosage: 5-10 TABLETS (100 MG EACH)
     Route: 048
  2. TYLENOL [Suspect]
     Indication: PRODUCT USED FOR UNKNOWN INDICATION
     Dosage: UNK
     Route: 048
  3. FIORINAL NO. 3 [Concomitant]
     Indication: PRODUCT USED FOR UNKNOWN INDICATION
     Dosage: TWO TABLETS
     Route: 065

REACTIONS (3)
  - Overdose [Fatal]
  - Hepatic encephalopathy [Fatal]
  - Cardio-respiratory arrest [Fatal]
